FAERS Safety Report 7121086-X (Version None)
Quarter: 2010Q4

REPORT INFORMATION
  Report Type: 
  Country: None (occurrence: None)
  Receive Date: 20101124
  Receipt Date: 20101119
  Transmission Date: 20110411
  Serious: Yes (Hospitalization)
  Sender: FDA-Public Use
  Company Number: FR-BRISTOL-MYERS SQUIBB COMPANY-15398654

PATIENT
  Age: 56 Year
  Sex: Female

DRUGS (6)
  1. COUMADIN [Suspect]
     Dosage: SINCE 10 YEARS.DRUG INTERRUPTED ON 03OCT10. 2 TABLETS PRESCRIBED ON 15-OCT-2010
     Route: 048
  2. HEPARIN SODIUM [Suspect]
     Dosage: DRUG INTERRUPTED ON 15OCT10, 17OCT10. RESUMED ON 19OCT10
     Route: 042
     Dates: start: 20101003
  3. ENALAPRIL MALEATE [Concomitant]
  4. OROCAL D3 [Concomitant]
  5. KERLONE [Concomitant]
     Dosage: FOR SEVERAL YEARS
  6. PROTELOS [Concomitant]
     Dosage: FOR LESS THAN A YEAR

REACTIONS (3)
  - INTRA-ABDOMINAL HAEMORRHAGE [None]
  - PLEURAL HAEMORRHAGE [None]
  - RENAL FAILURE [None]
